FAERS Safety Report 17452944 (Version 3)
Quarter: 2020Q1

REPORT INFORMATION
  Report Type: Spontaneous
  Country: US (occurrence: US)
  Receive Date: 20200224
  Receipt Date: 20200324
  Transmission Date: 20200409
  Serious: Yes (Hospitalization)
  Sender: FDA-Public Use
  Company Number: US-SHIRE-US202006627

PATIENT
  Age: 48 Year
  Sex: Female

DRUGS (2)
  1. CINRYZE [Suspect]
     Active Substance: HUMAN C1-ESTERASE INHIBITOR
     Dosage: 1000 INTERNATIONAL UNIT, OTHER
     Route: 050
     Dates: end: 20200114
  2. CINRYZE [Suspect]
     Active Substance: HUMAN C1-ESTERASE INHIBITOR
     Indication: PRODUCT USED FOR UNKNOWN INDICATION
     Dosage: 1000 INTERNATIONAL UNIT, EVERY 3 TO 4 DAYS
     Route: 050
     Dates: start: 20120622

REACTIONS (1)
  - Bronchitis [Unknown]

NARRATIVE: CASE EVENT DATE: 20200215
